FAERS Safety Report 14008147 (Version 1)
Quarter: 2017Q3

REPORT INFORMATION
  Report Type: Spontaneous
  Country: TW (occurrence: TW)
  Receive Date: 20170925
  Receipt Date: 20170925
  Transmission Date: 20171128
  Serious: Yes (Hospitalization)
  Sender: FDA-Public Use
  Company Number: TW-SA-2017SA173304

PATIENT
  Age: 17 Year
  Sex: Female

DRUGS (1)
  1. CEREZYME [Suspect]
     Active Substance: IMIGLUCERASE
     Route: 041

REACTIONS (2)
  - Pyrexia [Unknown]
  - Seizure [Not Recovered/Not Resolved]

NARRATIVE: CASE EVENT DATE: 20170916
